FAERS Safety Report 8911242 (Version 1)
Quarter: 2012Q4

REPORT INFORMATION
  Report Type: 
  Country: US (occurrence: US)
  Receive Date: 20121115
  Receipt Date: 20121115
  Transmission Date: 20130627
  Serious: No
  Sender: FDA-Public Use
  Company Number: US-AMGEN-USASP2012008566

PATIENT
  Age: 84 Year
  Sex: Male
  Weight: 77.1 kg

DRUGS (3)
  1. VECTIBIX [Suspect]
     Indication: COLON CANCER METASTATIC
     Dosage: 6 mg/kg, qwk
     Dates: start: 20110920, end: 20120117
  2. STATIN [Concomitant]
  3. VITAMINS [Concomitant]

REACTIONS (8)
  - Skin haemorrhage [Recovered/Resolved]
  - Hypoacusis [Not Recovered/Not Resolved]
  - Skin burning sensation [Not Recovered/Not Resolved]
  - Rash generalised [Not Recovered/Not Resolved]
  - Pruritus [Not Recovered/Not Resolved]
  - Skin ulcer [Not Recovered/Not Resolved]
  - Paronychia [Not Recovered/Not Resolved]
  - Skin reaction [Recovered/Resolved]
